FAERS Safety Report 26012371 (Version 2)
Quarter: 2025Q4

REPORT INFORMATION
  Report Type: Spontaneous
  Country: CA (occurrence: CA)
  Receive Date: 20251107
  Receipt Date: 20251231
  Transmission Date: 20260117
  Serious: Yes (Other)
  Sender: PFIZER
  Company Number: CA-PFIZER INC-PV202500051863

PATIENT
  Age: 62 Year
  Sex: Male

DRUGS (3)
  1. IXIFI [Suspect]
     Active Substance: INFLIXIMAB-QBTX
     Indication: Crohn^s disease
     Dosage: EVERY 8 WEEKS
     Route: 041
  2. IXIFI [Suspect]
     Active Substance: INFLIXIMAB-QBTX
     Dosage: 800 MG EVERY 8 WEEKS
     Route: 042
     Dates: start: 20250522
  3. IXIFI [Suspect]
     Active Substance: INFLIXIMAB-QBTX
     Dosage: 800 MG EVERY 8 WEEKS
     Route: 042
     Dates: start: 20250911

REACTIONS (2)
  - Faecal calprotectin increased [Unknown]
  - Condition aggravated [Unknown]

NARRATIVE: CASE EVENT DATE: 20251101
